FAERS Safety Report 7374507-1 (Version None)
Quarter: 2011Q1

REPORT INFORMATION
  Report Type: 
  Country: None (occurrence: None)
  Receive Date: 20110325
  Receipt Date: 20110127
  Transmission Date: 20110831
  Serious: No
  Sender: FDA-Public Use
  Company Number: US-MYLANLABS-2011S1002125

PATIENT
  Age: 53 Year
  Sex: Male

DRUGS (2)
  1. FENTANYL-100 [Suspect]
     Indication: BACK PAIN
     Dosage: CHANGED Q72H
     Route: 062
     Dates: start: 20101201
  2. ASKINA DERM FILM DRESSING [Suspect]
     Dosage: Q72HR
     Route: 062
     Dates: start: 20110101

REACTIONS (4)
  - APPLICATION SITE SCAR [None]
  - APPLICATION SITE IRRITATION [None]
  - APPLICATION SITE PRURITUS [None]
  - APPLICATION SITE DRYNESS [None]
